FAERS Safety Report 6103623-7 (Version None)
Quarter: 2009Q1

REPORT INFORMATION
  Report Type: 
  Country: None (occurrence: None)
  Receive Date: 20090302
  Receipt Date: 20090212
  Transmission Date: 20090719
  Serious: Yes (Death)
  Sender: FDA-Public Use
  Company Number: 1000004907

PATIENT
  Age: 43 Year
  Sex: Male

DRUGS (5)
  1. CARBAMAZEPINE [Suspect]
  2. OPIOID [Suspect]
  3. BENZODIAZEPINE [Suspect]
  4. MARIJUANA [Suspect]
  5. UNKNOWN SUBSTANCE [Suspect]

REACTIONS (4)
  - CARDIAC ARREST [None]
  - COMPLETED SUICIDE [None]
  - MULTIPLE DRUG OVERDOSE INTENTIONAL [None]
  - RESPIRATORY ARREST [None]
